FAERS Safety Report 23448514 (Version 2)
Quarter: 2024Q2

REPORT INFORMATION
  Report Type: Report from Study
  Country: US (occurrence: US)
  Receive Date: 20240127
  Receipt Date: 20240402
  Transmission Date: 20240715
  Serious: Yes (Other)
  Sender: FDA-Public Use
  Company Number: US-002147023-NVSC2024US014959

PATIENT
  Sex: Female
  Weight: 133.81 kg

DRUGS (1)
  1. COSENTYX [Suspect]
     Active Substance: SECUKINUMAB
     Indication: Ankylosing spondylitis
     Dosage: 300 MG, QW (2 PENS OF 150 MG)
     Route: 058
     Dates: start: 202312

REACTIONS (2)
  - Pulmonary arterial hypertension [Unknown]
  - Cough [Unknown]
